FAERS Safety Report 25453126 (Version 1)
Quarter: 2025Q2

REPORT INFORMATION
  Report Type: Report from Study
  Country: US (occurrence: US)
  Receive Date: 20250618
  Receipt Date: 20250618
  Transmission Date: 20250716
  Serious: Yes (Other)
  Sender: ALEXION PHARMACEUTICALS
  Company Number: US-AstraZeneca-CH-00891142A

PATIENT
  Age: 54 Year
  Weight: 103.4 kg

DRUGS (2)
  1. OLAPARIB [Suspect]
     Active Substance: OLAPARIB
     Indication: Ovarian cancer
     Dosage: 150 MILLIGRAM, BID
  2. METOPROLOL TARTRATE [Suspect]
     Active Substance: METOPROLOL TARTRATE
     Route: 065

REACTIONS (5)
  - Myocardial infarction [Unknown]
  - Feeling abnormal [Unknown]
  - Nausea [Unknown]
  - Gastrointestinal disorder [Unknown]
  - Product use issue [Unknown]
